FAERS Safety Report 9113117 (Version 1)
Quarter: 2013Q1

REPORT INFORMATION
  Report Type: Spontaneous
  Country: FR (occurrence: FR)
  Receive Date: 20130211
  Receipt Date: 20130211
  Transmission Date: 20140127
  Serious: Yes (Hospitalization)
  Sender: FDA-Public Use
  Company Number: FR-ROCHE-1186394

PATIENT
  Age: 50 Year
  Sex: Male

DRUGS (11)
  1. ROVALCYTE [Suspect]
     Indication: CYTOMEGALOVIRUS INFECTION
     Route: 048
     Dates: start: 20121210, end: 20130109
  2. PROGRAF [Suspect]
     Indication: CYTOMEGALOVIRUS INFECTION
     Route: 048
     Dates: start: 20121212
  3. PROGRAF [Suspect]
     Route: 065
  4. CELLCEPT [Concomitant]
     Indication: CYTOMEGALOVIRUS INFECTION
     Route: 065
     Dates: start: 20121212
  5. HEPARINE [Concomitant]
     Route: 065
     Dates: start: 20121227
  6. ORBENINE [Concomitant]
     Route: 065
     Dates: start: 20121227
  7. GENTAMYCIN [Concomitant]
     Route: 065
     Dates: start: 20121228
  8. FLUCONAZOLE [Concomitant]
     Route: 065
     Dates: start: 20121231
  9. INSULIN [Concomitant]
  10. PIPERACILLIN SODIUM/TAZOBACTAM [Concomitant]
     Route: 065
     Dates: start: 20121229
  11. TICARCILLIN [Concomitant]

REACTIONS (1)
  - Quadriparesis [Not Recovered/Not Resolved]
